FAERS Safety Report 5535562-4 (Version None)
Quarter: 2007Q4

REPORT INFORMATION
  Report Type: 
  Country: None (occurrence: None)
  Receive Date: 20071120
  Receipt Date: 20070809
  Transmission Date: 20080405
  Serious: No
  Sender: FDA-Public Use
  Company Number: WAES 0708USA01887

PATIENT
  Age: 49 Year
  Sex: Male
  Weight: 130.6359 kg

DRUGS (6)
  1. JANUVIA [Suspect]
     Indication: DIABETES MELLITUS
     Dosage: 100 MG/DAILY/PO
     Route: 048
     Dates: start: 20070601
  2. DIOVAN HCT [Concomitant]
  3. GLUCOPHAGE [Concomitant]
  4. GLUCOTROL XL [Concomitant]
  5. LOPRESSOR [Concomitant]
  6. GLIPIZIDE [Concomitant]

REACTIONS (4)
  - AMNESIA [None]
  - CONSTIPATION [None]
  - DIZZINESS [None]
  - UPPER RESPIRATORY TRACT INFECTION [None]
